FAERS Safety Report 8078221-9 (Version None)
Quarter: 2012Q1

REPORT INFORMATION
  Report Type: 
  Country: None (occurrence: None)
  Receive Date: 20120123
  Receipt Date: 20120109
  Transmission Date: 20120608
  Serious: Yes (Death)
  Sender: FDA-Public Use
  Company Number: JPI-P-007574

PATIENT
  Age: 59 Year
  Sex: Female
  Weight: 71.2147 kg

DRUGS (21)
  1. ZIPRASIDONE HYDROCHLORIDE [Concomitant]
  2. VITAMIN B COMPLEX CAP [Concomitant]
  3. VENLAFAXINE [Concomitant]
  4. TRAMADOL HCL [Concomitant]
  5. UNSPECIFIED DRUGS, MEDICAMENTS, AND BIOLOGICAL SUBSTANCES [Suspect]
     Indication: COMPLETED SUICIDE
     Dates: end: 20090609
  6. DULOXETIME HYDROCHLORIDE [Concomitant]
  7. QUETIAPINE [Concomitant]
  8. TRAZODONE HCL [Concomitant]
  9. TOPIRAMATE [Concomitant]
  10. XYREM [Suspect]
     Indication: FIBROMYALGIA
     Dosage: 6 GM (3 GM,2 IN 1 D),ORAL ; 9 GM (4.5 GM,2 IN 1 D),ORAL
     Route: 048
     Dates: start: 20090424, end: 20090520
  11. XYREM [Suspect]
     Indication: SOMNOLENCE
     Dosage: 6 GM (3 GM,2 IN 1 D),ORAL ; 9 GM (4.5 GM,2 IN 1 D),ORAL
     Route: 048
     Dates: start: 20090424, end: 20090520
  12. XYREM [Suspect]
     Indication: INSOMNIA
     Dosage: 6 GM (3 GM,2 IN 1 D),ORAL ; 9 GM (4.5 GM,2 IN 1 D),ORAL
     Route: 048
     Dates: start: 20090424, end: 20090520
  13. XYREM [Suspect]
     Indication: FIBROMYALGIA
     Dosage: 6 GM (3 GM,2 IN 1 D),ORAL ; 9 GM (4.5 GM,2 IN 1 D),ORAL
     Route: 048
     Dates: start: 20050215
  14. XYREM [Suspect]
     Indication: SOMNOLENCE
     Dosage: 6 GM (3 GM,2 IN 1 D),ORAL ; 9 GM (4.5 GM,2 IN 1 D),ORAL
     Route: 048
     Dates: start: 20050215
  15. XYREM [Suspect]
     Indication: INSOMNIA
     Dosage: 6 GM (3 GM,2 IN 1 D),ORAL ; 9 GM (4.5 GM,2 IN 1 D),ORAL
     Route: 048
     Dates: start: 20050215
  16. PREGABALIN [Concomitant]
  17. PHENYTOIN [Concomitant]
  18. ZONISAMIDE [Concomitant]
  19. ALPRAZOLAM [Concomitant]
  20. TEGASEROD [Concomitant]
  21. OXCARBAZEPINE [Concomitant]

REACTIONS (2)
  - COMPLETED SUICIDE [None]
  - POISONING [None]
